FAERS Safety Report 5982974-0 (Version None)
Quarter: 2008Q4

REPORT INFORMATION
  Report Type: 
  Country: None (occurrence: None)
  Receive Date: 20081205
  Receipt Date: 20081205
  Transmission Date: 20090506
  Serious: No
  Sender: FDA-Public Use
  Company Number: None

PATIENT
  Age: 24 Year
  Sex: Female

DRUGS (1)
  1. ZICAM NO-DRIP LIQUID NASAL GEL EXTREME CONGESTION RELIEF WITH  MATRIXX [Suspect]
     Indication: NASAL CONGESTION
     Dosage: 2-3 SQUIRTS EVERY12 HOURS NASAL
     Route: 045
     Dates: start: 20081203, end: 20081204

REACTIONS (2)
  - AGEUSIA [None]
  - ANOSMIA [None]
